FAERS Safety Report 9005613 (Version 1)
Quarter: 2013Q1

REPORT INFORMATION
  Report Type: Spontaneous
  Country: US (occurrence: US)
  Receive Date: 20130109
  Receipt Date: 20130109
  Transmission Date: 20140127
  Serious: No
  Sender: FDA-Public Use
  Company Number: US-009507513-1301USA002903

PATIENT
  Sex: Female

DRUGS (1)
  1. CRIXIVAN [Suspect]
     Indication: HIV INFECTION
     Dosage: UNK
     Route: 048
     Dates: end: 2010

REACTIONS (4)
  - Muscle atrophy [Not Recovered/Not Resolved]
  - Nail discolouration [Not Recovered/Not Resolved]
  - Cachexia [Not Recovered/Not Resolved]
  - Vasodilatation [Not Recovered/Not Resolved]
